FAERS Safety Report 8943441 (Version 1)
Quarter: 2012Q4

REPORT INFORMATION
  Report Type: 
  Country: CA (occurrence: CA)
  Receive Date: 20121203
  Receipt Date: 20121203
  Transmission Date: 20130627
  Serious: Yes (Other)
  Sender: FDA-Public Use
  Company Number: CA-CELGENEUS-028-21880-12112563

PATIENT
  Age: 61 Year
  Sex: Female

DRUGS (2)
  1. REVLIMID [Suspect]
     Indication: MULTIPLE MYELOMA
     Dosage: 15 Milligram
     Route: 048
     Dates: start: 20121031
  2. DECADRON [Concomitant]
     Indication: DRUG USE FOR UNKNOWN INDICATION
     Dosage: 40 Milligram
     Route: 065

REACTIONS (7)
  - Head injury [Unknown]
  - Fall [Unknown]
  - Loss of consciousness [Unknown]
  - Arthralgia [Unknown]
  - Asthenia [Unknown]
  - Dizziness [Unknown]
  - Rash generalised [Unknown]
